FAERS Safety Report 15097137 (Version 3)
Quarter: 2018Q3

REPORT INFORMATION
  Report Type: Spontaneous
  Country: BR (occurrence: BR)
  Receive Date: 20180702
  Receipt Date: 20180910
  Transmission Date: 20181010
  Serious: Yes (Hospitalization, Other)
  Sender: FDA-Public Use
  Company Number: BR-GLAXOSMITHKLINE-BR2017GSK149341

PATIENT
  Age: 30 Year
  Sex: Female
  Weight: 57 kg

DRUGS (1)
  1. BENLYSTA [Suspect]
     Active Substance: BELIMUMAB
     Indication: SYSTEMIC LUPUS ERYTHEMATOSUS
     Dosage: 400 MG, UNK
     Dates: start: 20170920

REACTIONS (12)
  - Oedema peripheral [Unknown]
  - Drug dose omission [Unknown]
  - Headache [Unknown]
  - Skin lesion [Unknown]
  - Inappropriate schedule of drug administration [Not Recovered/Not Resolved]
  - Depression [Unknown]
  - Underdose [Unknown]
  - Irritability [Unknown]
  - Weight increased [Unknown]
  - Alopecia [Unknown]
  - Product prescribing issue [Unknown]
  - Thrombosis [Unknown]

NARRATIVE: CASE EVENT DATE: 20171017
